FAERS Safety Report 17193853 (Version 1)
Quarter: 2019Q4

REPORT INFORMATION
  Report Type: Report from Study
  Country: None (occurrence: CN)
  Receive Date: 20191223
  Receipt Date: 20191223
  Transmission Date: 20200122
  Serious: Yes (Hospitalization)
  Sender: FDA-Public Use
  Company Number: CN-ABBVIE-19P-035-3195480-00

PATIENT
  Age: 72 Year
  Sex: Male
  Weight: 48 kg

DRUGS (17)
  1. VENETOCLAX. [Suspect]
     Active Substance: VENETOCLAX
     Route: 048
     Dates: start: 20190628, end: 20191006
  2. AZACITIDINE. [Suspect]
     Active Substance: AZACITIDINE
     Indication: ACUTE MYELOID LEUKAEMIA
     Dosage: DAYS 1-7 OF EACH CYCLE
     Route: 058
     Dates: start: 20190319
  3. LEVAMLODIPINE BESYLATE [Concomitant]
     Active Substance: LEVAMLODIPINE BESYLATE
     Indication: HYPERTENSION
     Route: 048
     Dates: start: 2006
  4. RECOMBINANT HUMAN GRANULOCYTE STIMULATING [Concomitant]
     Route: 058
     Dates: start: 20190524, end: 20190525
  5. VENETOCLAX. [Suspect]
     Active Substance: VENETOCLAX
     Route: 048
     Dates: start: 20191021
  6. ALLOPURINOL. [Concomitant]
     Active Substance: ALLOPURINOL
     Indication: PROPHYLAXIS
     Route: 048
     Dates: start: 20190302, end: 20190308
  7. RECOMBINANT HUMAN GRANULOCYTE STIMULATING [Concomitant]
     Route: 058
     Dates: start: 20190604, end: 20190623
  8. VENETOCLAX. [Suspect]
     Active Substance: VENETOCLAX
     Route: 048
     Dates: start: 20190320, end: 20190320
  9. SODIUM BICARBONATE. [Concomitant]
     Active Substance: SODIUM BICARBONATE
     Indication: PROPHYLAXIS
     Route: 042
     Dates: start: 20190318, end: 20190322
  10. NORMAL SALINE SOLUTION (0.9% SODIUM CHLORIDE) [Concomitant]
     Indication: PROPHYLAXIS
     Route: 042
     Dates: start: 20190318, end: 20190322
  11. VENETOCLAX. [Suspect]
     Active Substance: VENETOCLAX
     Route: 048
     Dates: start: 20190321, end: 20190614
  12. SODIUM BICARBONATE. [Concomitant]
     Active Substance: SODIUM BICARBONATE
     Route: 042
     Dates: start: 20190323, end: 20190325
  13. SODIUM BICARBONATE. [Concomitant]
     Active Substance: SODIUM BICARBONATE
     Route: 042
     Dates: start: 20190518, end: 20190524
  14. VENETOCLAX. [Suspect]
     Active Substance: VENETOCLAX
     Indication: ACUTE MYELOID LEUKAEMIA
     Route: 048
     Dates: start: 20190319, end: 20190319
  15. METOPROLOL TARTRATE. [Concomitant]
     Active Substance: METOPROLOL TARTRATE
     Indication: HYPERTENSION
     Route: 048
     Dates: start: 2006
  16. RECOMBINANT HUMAN GRANULOCYTE STIMULATING [Concomitant]
     Indication: NEUTROPENIA
     Route: 058
     Dates: start: 20190415, end: 20190417
  17. 5% DEXTROSE IN WATER [Concomitant]
     Indication: PROPHYLAXIS
     Route: 042
     Dates: start: 20190318, end: 20190325

REACTIONS (1)
  - Cytopenia [Recovered/Resolved]

NARRATIVE: CASE EVENT DATE: 20190604
